FAERS Safety Report 8350115-0 (Version None)
Quarter: 2012Q2

REPORT INFORMATION
  Report Type: 
  Country: None (occurrence: None)
  Receive Date: 20120510
  Receipt Date: 20120508
  Transmission Date: 20120825
  Serious: Yes (Death, Hospitalization)
  Sender: FDA-Public Use
  Company Number: BE-ROCHE-1067248

PATIENT
  Age: 70 Year

DRUGS (1)
  1. XELODA [Suspect]
     Indication: COLORECTAL CANCER

REACTIONS (2)
  - DIARRHOEA [None]
  - DEATH [None]
